FAERS Safety Report 6434944-6 (Version None)
Quarter: 2009Q3

REPORT INFORMATION
  Report Type: 
  Country: None (occurrence: None)
  Receive Date: 20090901
  Receipt Date: 20090901
  Transmission Date: 20100115
  Serious: Yes (Death)
  Sender: FDA-Public Use
  Company Number: None

PATIENT
  Age: 29 Year
  Sex: Male
  Weight: 86.1834 kg

DRUGS (1)
  1. OMNEVOL [Suspect]
     Indication: MUSCLE BUILDING THERAPY
     Dosage: OFF AND ON
     Dates: start: 20080501, end: 20090712

REACTIONS (6)
  - ANGER [None]
  - CARDIOMEGALY [None]
  - FALL [None]
  - MYOPATHY [None]
  - PERSONALITY CHANGE [None]
  - SWELLING [None]
